FAERS Safety Report 5241266-8 (Version None)
Quarter: 2007Q1

REPORT INFORMATION
  Report Type: 
  Country: None (occurrence: None)
  Receive Date: 20070212
  Receipt Date: 20070116
  Transmission Date: 20070707
  Serious: Yes (Death)
  Sender: FDA-Public Use
  Company Number: 2006RR-04738

PATIENT
  Age: 27 Year
  Sex: Female
  Weight: 84 kg

DRUGS (4)
  1. PARACETAMOL(PARACETAMOL) UNKNOWN [Suspect]
     Indication: DRUG USE FOR UNKNOWN INDICATION
  2. CANNABIS(CANNABIS) [Suspect]
     Indication: DRUG USE FOR UNKNOWN INDICATION
  3. SEROQUEL [Suspect]
     Indication: DEPRESSION
     Dosage: 200 MG, BID, ORAL
     Route: 048
  4. PAROXETINE [Concomitant]

REACTIONS (1)
  - MULTIPLE DRUG OVERDOSE [None]
